FAERS Safety Report 19473381 (Version 1)
Quarter: 2021Q2

REPORT INFORMATION
  Report Type: Report from Study
  Country: US (occurrence: US)
  Receive Date: 20210629
  Receipt Date: 20210629
  Transmission Date: 20210717
  Serious: Yes (Hospitalization, Other)
  Sender: FDA-Public Use
  Company Number: US-JNJFOC-20210651647

PATIENT
  Age: 66 Year
  Sex: Female

DRUGS (5)
  1. SELEXIPAG [Suspect]
     Active Substance: SELEXIPAG
     Indication: PULMONARY ARTERIAL HYPERTENSION
     Route: 048
     Dates: start: 20210429
  2. OXYGEN. [Concomitant]
     Active Substance: OXYGEN
  3. METOPROLOL. [Concomitant]
     Active Substance: METOPROLOL
  4. MACITENTAN [Suspect]
     Active Substance: MACITENTAN
     Indication: PULMONARY ARTERIAL HYPERTENSION
     Route: 048
     Dates: start: 20210325
  5. MIDODRINE [Concomitant]
     Active Substance: MIDODRINE

REACTIONS (7)
  - Oxygen consumption increased [Unknown]
  - Hypotension [Unknown]
  - Insomnia [Recovering/Resolving]
  - Nausea [Recovering/Resolving]
  - Atrial fibrillation [Unknown]
  - Decreased appetite [Recovering/Resolving]
  - Atrial flutter [Unknown]
